FAERS Safety Report 6226688-0 (Version None)
Quarter: 2009Q2

REPORT INFORMATION
  Report Type: 
  Country: None (occurrence: None)
  Receive Date: 20090610
  Receipt Date: 20090529
  Transmission Date: 20091009
  Serious: Yes (Other)
  Sender: FDA-Public Use
  Company Number: CH-WYE-G03762109

PATIENT
  Age: 31 Year
  Sex: Female

DRUGS (7)
  1. EFFEXOR [Suspect]
     Indication: DEPRESSION
     Dosage: SEE IMAGE
     Route: 048
     Dates: start: 20040301, end: 20050101
  2. EFFEXOR [Suspect]
     Indication: DEPRESSION
     Dosage: SEE IMAGE
     Route: 048
     Dates: start: 20090109, end: 20090101
  3. EFFEXOR [Suspect]
     Indication: DEPRESSION
     Dosage: SEE IMAGE
     Route: 048
     Dates: start: 20050101, end: 20090108
  4. EFFEXOR [Suspect]
     Indication: DEPRESSION
     Dosage: SEE IMAGE
     Route: 048
     Dates: start: 20090101, end: 20090402
  5. HUMIRA [Concomitant]
  6. VALIUM [Concomitant]
  7. TRUXALETTEN (CHLORPROTHIXENE HYDROCHLORIDE) [Concomitant]

REACTIONS (26)
  - ABDOMINAL PAIN [None]
  - ABNORMAL DREAMS [None]
  - ANOREXIA [None]
  - ANXIETY [None]
  - CHILLS [None]
  - CONFUSIONAL STATE [None]
  - DEPRESSION [None]
  - DIARRHOEA [None]
  - DISTURBANCE IN ATTENTION [None]
  - DIZZINESS POSTURAL [None]
  - DRUG WITHDRAWAL SYNDROME [None]
  - DYSGEUSIA [None]
  - FATIGUE [None]
  - FEELING OF BODY TEMPERATURE CHANGE [None]
  - HEADACHE [None]
  - HYPERHIDROSIS [None]
  - HYPERSOMNIA [None]
  - HYPOTENSION [None]
  - INFLUENZA LIKE ILLNESS [None]
  - LIVEDO RETICULARIS [None]
  - MALAISE [None]
  - MYALGIA [None]
  - PAROSMIA [None]
  - READING DISORDER [None]
  - SKIN ODOUR ABNORMAL [None]
  - VISION BLURRED [None]
